FAERS Safety Report 10752735 (Version 1)
Quarter: 2015Q1

REPORT INFORMATION
  Report Type: Report from Study
  Country: US (occurrence: US)
  Receive Date: 20150130
  Receipt Date: 20150130
  Transmission Date: 20150721
  Serious: Yes (Hospitalization)
  Sender: FDA-Public Use
  Company Number: US-PURDUE PHARMA-USA-2015-0120610

PATIENT
  Age: 34 Year
  Sex: Male

DRUGS (1)
  1. OXYCONTIN [Suspect]
     Active Substance: OXYCODONE HYDROCHLORIDE
     Indication: SPINAL COLUMN STENOSIS
     Dosage: 40 MG, Q12H
     Route: 048
     Dates: start: 20141212

REACTIONS (2)
  - Tooth abscess [Recovered/Resolved]
  - Gingival injury [Unknown]

NARRATIVE: CASE EVENT DATE: 20150109
